FAERS Safety Report 8851675 (Version 6)
Quarter: 2014Q1

REPORT INFORMATION
  Report Type: Spontaneous
  Country: US (occurrence: US)
  Receive Date: 20121022
  Receipt Date: 20140107
  Transmission Date: 20141002
  Serious: No
  Sender: FDA-Public Use
  Company Number: US-009507513-1210USA008293

PATIENT
  Age: 24 Year
  Sex: Female

DRUGS (1)
  1. IMPLANON [Suspect]
     Indication: CONTRACEPTION
     Dosage: UNK
     Route: 059
     Dates: start: 20120626

REACTIONS (3)
  - Unintended pregnancy [Recovered/Resolved]
  - Medical device complication [Not Recovered/Not Resolved]
  - Drug dose omission [Unknown]
